FAERS Safety Report 8102437-6 (Version None)
Quarter: 2012Q1

REPORT INFORMATION
  Report Type: 
  Country: None (occurrence: None)
  Receive Date: 20120126
  Receipt Date: 20120119
  Transmission Date: 20120608
  Serious: Yes (Hospitalization)
  Sender: FDA-Public Use
  Company Number: 1000027278

PATIENT
  Sex: Female

DRUGS (1)
  1. DALIRESP [Suspect]
     Dosage: ORAL
     Route: 048

REACTIONS (1)
  - MENTAL DISORDER [None]
